FAERS Safety Report 12742513 (Version 1)
Quarter: 2016Q3

REPORT INFORMATION
  Report Type: Spontaneous
  Country: BR (occurrence: BR)
  Receive Date: 20160914
  Receipt Date: 20160914
  Transmission Date: 20161109
  Serious: Yes (Death, Life-Threatening, Other)
  Sender: FDA-Public Use
  Company Number: BR-JNJFOC-20160911927

PATIENT

DRUGS (2)
  1. FENTANYL. [Suspect]
     Active Substance: FENTANYL
     Indication: UNEVALUABLE EVENT
     Route: 065
  2. DOLANTINA [Concomitant]
     Active Substance: MEPERIDINE HYDROCHLORIDE

REACTIONS (3)
  - Dependence [Unknown]
  - Intentional product misuse [Unknown]
  - Death [Fatal]
